FAERS Safety Report 17169242 (Version 1)
Quarter: 2019Q4

REPORT INFORMATION
  Report Type: Spontaneous
  Country: US (occurrence: US)
  Receive Date: 20191218
  Receipt Date: 20191218
  Transmission Date: 20200122
  Serious: Yes (Other)
  Sender: FDA-Public Use
  Company Number: US-BAYER-2019-228457

PATIENT
  Age: 53 Year
  Sex: Female
  Weight: 66 kg

DRUGS (4)
  1. MIRALAX [Suspect]
     Active Substance: POLYETHYLENE GLYCOL 3350
     Indication: CONSTIPATION
     Dosage: CAPFUL OR HALF AND C
     Route: 048
     Dates: start: 20190813
  2. AMITIZA [Concomitant]
     Active Substance: LUBIPROSTONE
  3. MOTEGRITY [Concomitant]
     Active Substance: PRUCALOPRIDE SUCCINATE
  4. LONZA [Concomitant]

REACTIONS (2)
  - Impaired gastric emptying [None]
  - Incorrect dose administered [Unknown]

NARRATIVE: CASE EVENT DATE: 2019
